FAERS Safety Report 14099994 (Version 2)
Quarter: 2017Q4

REPORT INFORMATION
  Report Type: Spontaneous
  Country: US (occurrence: US)
  Receive Date: 20171017
  Receipt Date: 20171019
  Transmission Date: 20180321
  Serious: Yes (Death, Hospitalization)
  Sender: FDA-Public Use
  Company Number: US-CELGENEUS-USA-20171004658

PATIENT
  Age: 79 Year
  Sex: Female

DRUGS (2)
  1. REVLIMID [Suspect]
     Active Substance: LENALIDOMIDE
     Indication: PLASMA CELL MYELOMA
     Dosage: 10 MILLIGRAM
     Route: 048
     Dates: start: 20170909
  2. KYPROLIS [Suspect]
     Active Substance: CARFILZOMIB
     Indication: CHEMOTHERAPY
     Route: 065
     Dates: end: 20170921

REACTIONS (3)
  - Respiratory failure [Unknown]
  - Cardiac failure acute [Unknown]
  - Death [Fatal]

NARRATIVE: CASE EVENT DATE: 201709
